FAERS Safety Report 8062157-3 (Version None)
Quarter: 2012Q1

REPORT INFORMATION
  Report Type: 
  Country: None (occurrence: None)
  Receive Date: 20120123
  Receipt Date: 20120111
  Transmission Date: 20120608
  Serious: Yes (Hospitalization)
  Sender: FDA-Public Use
  Company Number: US-MYLANLABS-2008S1004256

PATIENT
  Age: 59 Year
  Sex: Male
  Weight: 117.94 kg

DRUGS (13)
  1. LOVASTATIN [Concomitant]
     Indication: BLOOD CHOLESTEROL INCREASED
     Dates: start: 20050101
  2. METHOTREXATE [Suspect]
     Route: 048
     Dates: start: 20080311, end: 20080311
  3. FOLIC ACID [Concomitant]
     Indication: SUPPLEMENTATION THERAPY
     Dates: start: 20070830
  4. FISH OIL [Concomitant]
     Indication: SUPPLEMENTATION THERAPY
     Dosage: 2 CAPSULES/DAY
     Dates: start: 20000101
  5. HUMIRA [Suspect]
     Indication: RHEUMATOID ARTHRITIS
     Route: 058
     Dates: start: 20070911, end: 20080212
  6. ATENOLOL [Concomitant]
     Indication: HYPERTENSION
     Dates: start: 20000101
  7. LISINOPRIL [Concomitant]
     Indication: HYPERTENSION
     Dosage: 20/25 MG
     Dates: start: 20000101
  8. VICODIN [Concomitant]
     Indication: RHEUMATOID ARTHRITIS
     Dosage: 7.5 MG/ 750 MG
     Dates: start: 20071106
  9. ASPIRIN [Concomitant]
     Indication: PROPHYLAXIS
     Dates: start: 20000101
  10. CELECOXIB [Concomitant]
     Indication: RHEUMATOID ARTHRITIS
     Dates: start: 20071106
  11. MULTI-VITAMINS [Concomitant]
     Indication: SUPPLEMENTATION THERAPY
     Dosage: 1 TABLET/DAY
     Dates: start: 20000101
  12. PREDNISONE TAB [Concomitant]
     Indication: RHEUMATOID ARTHRITIS
     Dates: start: 20070830
  13. METHOTREXATE [Suspect]
     Indication: RHEUMATOID ARTHRITIS
     Route: 048
     Dates: start: 20070911, end: 20080219

REACTIONS (3)
  - CELLULITIS [None]
  - STAPHYLOCOCCAL ABSCESS [None]
  - BRADYCARDIA [None]
